FAERS Safety Report 23534144 (Version 2)
Quarter: 2024Q1

REPORT INFORMATION
  Report Type: Report from Study
  Country: US (occurrence: US)
  Receive Date: 20240216
  Receipt Date: 20240220
  Transmission Date: 20240410
  Serious: Yes (Other)
  Sender: FDA-Public Use
  Company Number: US-ABBVIE-5639136

PATIENT
  Age: 69 Year
  Sex: Female

DRUGS (2)
  1. SKYRIZI [Suspect]
     Active Substance: RISANKIZUMAB-RZAA
     Indication: Pouchitis
     Route: 042
     Dates: start: 20231114
  2. SKYRIZI [Suspect]
     Active Substance: RISANKIZUMAB-RZAA
     Indication: Pouchitis
     Route: 042
     Dates: start: 20231209

REACTIONS (7)
  - Small intestinal resection [Unknown]
  - Off label use [Unknown]
  - Pain [Unknown]
  - Colitis ulcerative [Unknown]
  - Pouchitis [Unknown]
  - Gastrointestinal inflammation [Unknown]
  - Unevaluable event [Unknown]

NARRATIVE: CASE EVENT DATE: 20231114
